FAERS Safety Report 20355770 (Version 2)
Quarter: 2022Q1

REPORT INFORMATION
  Report Type: Spontaneous
  Country: US (occurrence: US)
  Receive Date: 20220120
  Receipt Date: 20220218
  Transmission Date: 20220423
  Serious: No
  Sender: FDA-Public Use
  Company Number: US-PFIZER INC-202200017107

PATIENT
  Age: 24 Year
  Sex: Female
  Weight: 83.447 kg

DRUGS (1)
  1. DEPO-PROVERA [Suspect]
     Active Substance: MEDROXYPROGESTERONE ACETATE
     Indication: Contraception
     Dosage: 104 MG/0.65 ML , EVERY 3 MONTHS
     Dates: start: 2017

REACTIONS (3)
  - Drug dose omission by device [Unknown]
  - Poor quality device used [Unknown]
  - Device use issue [Unknown]

NARRATIVE: CASE EVENT DATE: 20211215
